FAERS Safety Report 14077892 (Version 2)
Quarter: 2018Q3

REPORT INFORMATION
  Report Type: Spontaneous
  Country: US (occurrence: US)
  Receive Date: 20171012
  Receipt Date: 20180712
  Transmission Date: 20181010
  Serious: Yes (Other)
  Sender: FDA-Public Use
  Company Number: US-ASTRAZENECA-2017SF01609

PATIENT
  Age: 59 Year
  Sex: Female
  Weight: 77.1 kg

DRUGS (29)
  1. PRILOSEC [Suspect]
     Active Substance: OMEPRAZOLE MAGNESIUM
     Indication: HERNIA
     Dosage: GENERIC
     Route: 048
     Dates: start: 1987
  2. CELECOXIB. [Concomitant]
     Active Substance: CELECOXIB
  3. PIOGLITAZONE. [Concomitant]
     Active Substance: PIOGLITAZONE
  4. PRILOSEC [Suspect]
     Active Substance: OMEPRAZOLE MAGNESIUM
     Indication: GASTROOESOPHAGEAL REFLUX DISEASE
     Route: 048
     Dates: start: 1987
  5. PRILOSEC [Suspect]
     Active Substance: OMEPRAZOLE MAGNESIUM
     Indication: GASTROOESOPHAGEAL REFLUX DISEASE
     Route: 048
     Dates: start: 20090728
  6. NAPROXEN. [Concomitant]
     Active Substance: NAPROXEN
  7. CARVEDILOL. [Concomitant]
     Active Substance: CARVEDILOL
  8. SODIUM BICARBONATE. [Concomitant]
     Active Substance: SODIUM BICARBONATE
  9. LYRICA [Concomitant]
     Active Substance: PREGABALIN
  10. INSULIN [Concomitant]
     Active Substance: INSULIN NOS
  11. VALSARTAN. [Concomitant]
     Active Substance: VALSARTAN
  12. FERROUS SULFATE. [Concomitant]
     Active Substance: FERROUS SULFATE
  13. PRILOSEC [Suspect]
     Active Substance: OMEPRAZOLE MAGNESIUM
     Indication: GASTROOESOPHAGEAL REFLUX DISEASE
     Route: 048
     Dates: start: 1999, end: 2014
  14. LOSARTAN. [Concomitant]
     Active Substance: LOSARTAN
  15. VITAMIN D [Concomitant]
     Active Substance: CHOLECALCIFEROL
  16. DOCUSATE SODIUM. [Concomitant]
     Active Substance: DOCUSATE SODIUM
  17. PRILOSEC [Suspect]
     Active Substance: OMEPRAZOLE MAGNESIUM
     Indication: GASTROOESOPHAGEAL REFLUX DISEASE
     Dosage: GENERIC
     Route: 048
     Dates: start: 1987
  18. PRILOSEC [Suspect]
     Active Substance: OMEPRAZOLE MAGNESIUM
     Indication: HERNIA
     Route: 048
     Dates: start: 1999, end: 2014
  19. NEXIUM [Concomitant]
     Active Substance: ESOMEPRAZOLE MAGNESIUM
  20. MAGNESIUM HYDROXIDE. [Concomitant]
     Active Substance: MAGNESIUM HYDROXIDE
  21. BISACODYL. [Concomitant]
     Active Substance: BISACODYL
  22. FENOFIBRATE. [Concomitant]
     Active Substance: FENOFIBRATE
     Dates: start: 2008
  23. ENOXAPARIN [Concomitant]
     Active Substance: ENOXAPARIN
  24. TYLENOL [Concomitant]
     Active Substance: ACETAMINOPHEN
  25. PRILOSEC [Suspect]
     Active Substance: OMEPRAZOLE MAGNESIUM
     Indication: HERNIA
     Route: 048
     Dates: start: 1987
  26. PRILOSEC [Suspect]
     Active Substance: OMEPRAZOLE MAGNESIUM
     Indication: HERNIA
     Route: 048
     Dates: start: 20090728
  27. AMITRIPTYLINE [Concomitant]
     Active Substance: AMITRIPTYLINE
  28. EZETIMIBE. [Concomitant]
     Active Substance: EZETIMIBE
  29. SODIUM PHOSPHATE [Concomitant]
     Active Substance: SODIUM PHOSPHATE

REACTIONS (5)
  - End stage renal disease [Not Recovered/Not Resolved]
  - Nephropathy [Unknown]
  - Hypertensive nephropathy [Unknown]
  - Chronic kidney disease [Unknown]
  - Acute kidney injury [Unknown]

NARRATIVE: CASE EVENT DATE: 2007
